FAERS Safety Report 4344393-2 (Version None)
Quarter: 2004Q2

REPORT INFORMATION
  Report Type: 
  Country: None (occurrence: None)
  Receive Date: 20040421
  Receipt Date: 20040421
  Transmission Date: 20050107
  Serious: Yes (Other)
  Sender: FDA-Public Use
  Company Number: None

PATIENT
  Age: 69 Year
  Sex: Female
  Weight: 54.4316 kg

DRUGS (1)
  1. ESTRADERM 0.05 MG DISCIBA [Suspect]
     Indication: HAEMORRHAGE
     Dosage: APPLY ONE PATCH TWICE A WEEK
     Dates: start: 19940101

REACTIONS (3)
  - CONDITION AGGRAVATED [None]
  - DEAFNESS [None]
  - THROMBOSIS [None]
